FAERS Safety Report 19874101 (Version 2)
Quarter: 2021Q3

REPORT INFORMATION
  Report Type: Spontaneous
  Country: US (occurrence: US)
  Receive Date: 20210923
  Receipt Date: 20210928
  Transmission Date: 20211014
  Serious: Yes (Death, Hospitalization, Other)
  Sender: FDA-Public Use
  Company Number: US-SA-2021SA309355

PATIENT
  Age: 65 Year
  Sex: Female

DRUGS (16)
  1. PYRAZINAMIDE. [Suspect]
     Active Substance: PYRAZINAMIDE
     Indication: TUBERCULOSIS
  2. PYRAZINAMIDE. [Suspect]
     Active Substance: PYRAZINAMIDE
     Indication: INFECTIOUS PLEURAL EFFUSION
  3. MYCOPHENOLATE [Concomitant]
     Active Substance: MYCOPHENOLIC ACID
     Indication: IMMUNOSUPPRESSANT DRUG THERAPY
  4. TACROLIMUS. [Concomitant]
     Active Substance: TACROLIMUS
     Indication: IMMUNOSUPPRESSANT DRUG THERAPY
  5. OXYGEN. [Concomitant]
     Active Substance: OXYGEN
     Indication: DYSPNOEA
  6. ISONIAZID. [Suspect]
     Active Substance: ISONIAZID
     Indication: TUBERCULOSIS
  7. ETHAMBUTOL [Suspect]
     Active Substance: ETHAMBUTOL HYDROCHLORIDE
     Indication: TUBERCULOSIS
  8. PREDNISONE. [Concomitant]
     Active Substance: PREDNISONE
     Indication: IMMUNOSUPPRESSANT DRUG THERAPY
  9. VANCOMYCIN [Concomitant]
     Active Substance: VANCOMYCIN
     Indication: CLOSTRIDIUM DIFFICILE COLITIS
     Route: 048
  10. METRONIDAZOLE. [Concomitant]
     Active Substance: METRONIDAZOLE
     Indication: CLOSTRIDIUM DIFFICILE COLITIS
  11. RIFAMPICIN [Suspect]
     Active Substance: RIFAMPIN
     Indication: TUBERCULOSIS
  12. LINEZOLID. [Concomitant]
     Active Substance: LINEZOLID
     Indication: MASTITIS
  13. RIFAMPICIN [Suspect]
     Active Substance: RIFAMPIN
     Indication: INFECTIOUS PLEURAL EFFUSION
  14. ISONIAZID. [Suspect]
     Active Substance: ISONIAZID
     Indication: INFECTIOUS PLEURAL EFFUSION
  15. ETHAMBUTOL [Suspect]
     Active Substance: ETHAMBUTOL HYDROCHLORIDE
     Indication: INFECTIOUS PLEURAL EFFUSION
  16. BASILIXIMAB [Concomitant]
     Active Substance: BASILIXIMAB
     Dosage: WAS GIVEN ON POSTOPERATIVE DAYS 0 AND DAY 4

REACTIONS (10)
  - Grey Turner^s sign [Fatal]
  - Pancreatitis haemorrhagic [Fatal]
  - Oedematous pancreatitis [Fatal]
  - Distributive shock [Fatal]
  - Lipase increased [Fatal]
  - Toxicity to various agents [Fatal]
  - Disseminated intravascular coagulation [Fatal]
  - Cullen^s sign [Fatal]
  - Pancreatitis acute [Fatal]
  - Multiple organ dysfunction syndrome [Fatal]
